FAERS Safety Report 7010241-5 (Version None)
Quarter: 2010Q3

REPORT INFORMATION
  Report Type: 
  Country: None (occurrence: None)
  Receive Date: 20100923
  Receipt Date: 20100922
  Transmission Date: 20110219
  Serious: Yes (Hospitalization)
  Sender: FDA-Public Use
  Company Number: GXKR2009DE02475

PATIENT
  Age: 71 Year
  Sex: Female
  Weight: 81 kg

DRUGS (11)
  1. BISOPROLOL (NGX) [Suspect]
     Indication: CORONARY ARTERY DISEASE
     Dosage: 10 MG, QD
     Dates: start: 20080101, end: 20080925
  2. BISOPROLOL (NGX) [Suspect]
     Dosage: 5 MG, QD
     Dates: start: 20081004
  3. SIMVASTATIN [Concomitant]
  4. RAMIPRIL [Concomitant]
  5. PROCORALAN [Concomitant]
  6. OMEPRAZOLE [Concomitant]
  7. FELODIPINE [Concomitant]
  8. CLOPIDOGREL [Concomitant]
  9. CALCIUM [Concomitant]
  10. ACETYLSALICYLIC ACID [Concomitant]
  11. SOLOSIN - SLOW RELEASE [Suspect]
     Indication: DYSPNOEA
     Dosage: 135 MG, 3 IN DAY
     Route: 048
     Dates: start: 20081002, end: 20081004

REACTIONS (1)
  - TACHYCARDIA [None]
